FAERS Safety Report 7786355-9 (Version None)
Quarter: 2011Q3

REPORT INFORMATION
  Report Type: 
  Country: None (occurrence: None)
  Receive Date: 20110929
  Receipt Date: 20110919
  Transmission Date: 20111222
  Serious: Yes (Hospitalization)
  Sender: FDA-Public Use
  Company Number: US-JNJFOC-20110910826

PATIENT
  Sex: Male
  Weight: 47.8 kg

DRUGS (5)
  1. INFLIXIMAB, RECOMBINANT [Suspect]
     Indication: CROHN'S DISEASE
     Route: 042
     Dates: start: 20100831
  2. INFLIXIMAB, RECOMBINANT [Suspect]
     Route: 042
     Dates: start: 20110412
  3. METHOTREXATE [Concomitant]
  4. CIPROFLOXACIN [Concomitant]
  5. METRONIDAZOLE [Concomitant]

REACTIONS (1)
  - ABDOMINAL ABSCESS [None]
